FAERS Safety Report 5018179-X (Version None)
Quarter: 2006Q2

REPORT INFORMATION
  Report Type: 
  Country: None (occurrence: None)
  Receive Date: 20060530
  Receipt Date: 20050124
  Transmission Date: 20061013
  Serious: Yes (Hospitalization, Other)
  Sender: FDA-Public Use
  Company Number: 2004084442

PATIENT
  Age: 68 Year
  Sex: Male
  Weight: 84 kg

DRUGS (8)
  1. LYRICA [Suspect]
     Indication: DIABETIC NEUROPATHY
     Dosage: 300 MG (150 MG, 2 IN 1 D), ORAL
     Route: 048
     Dates: start: 20041001, end: 20041025
  2. FELODIPINE [Concomitant]
  3. ALL OTHER THERAPEUTIC PRODUCTS (ALL OTHER THERAPEUTIC PRODUCTS) [Concomitant]
  4. LANTUS [Concomitant]
  5. THIAMINE (THIAMINE) [Concomitant]
  6. CITALOPRAM HYDROBROMIDE [Concomitant]
  7. ASPIRIN [Concomitant]
  8. AMARYL [Concomitant]

REACTIONS (17)
  - BLOOD CREATININE INCREASED [None]
  - BLOOD UREA INCREASED [None]
  - BRAIN STEM HAEMORRHAGE [None]
  - BRAIN STEM INFARCTION [None]
  - CEREBROVASCULAR ACCIDENT [None]
  - CONDITION AGGRAVATED [None]
  - DISEASE RECURRENCE [None]
  - DYSPHAGIA [None]
  - GENERALISED OEDEMA [None]
  - INFARCTION [None]
  - LYMPHOEDEMA [None]
  - PAIN [None]
  - POLIOMYELITIS [None]
  - PROTEIN TOTAL DECREASED [None]
  - RASH PAPULAR [None]
  - RASH PUSTULAR [None]
  - SWELLING FACE [None]
